FAERS Safety Report 11588535 (Version 1)
Quarter: 2015Q4

REPORT INFORMATION
  Report Type: Spontaneous
  Country: US (occurrence: None)
  Receive Date: 20151001
  Receipt Date: 20151001
  Transmission Date: 20160304
  Serious: No
  Sender: FDA-Public Use
  Company Number: None

PATIENT
  Age: 55 Year
  Sex: Female
  Weight: 70.31 kg

DRUGS (1)
  1. LEVOCETIRIZINE DIHYDROCHLORIDE TA 5 MG TEVA/USA [Suspect]
     Active Substance: LEVOCETIRIZINE DIHYDROCHLORIDE
     Indication: SINUS DISORDER
     Dosage: 1 PILL
     Route: 048
     Dates: start: 20150928, end: 20150928

REACTIONS (3)
  - Sleep disorder due to general medical condition, insomnia type [None]
  - Heart rate increased [None]
  - Dyspnoea [None]

NARRATIVE: CASE EVENT DATE: 20150928
